FAERS Safety Report 12320114 (Version 2)
Quarter: 2016Q2

REPORT INFORMATION
  Report Type: Spontaneous
  Country: CH (occurrence: CH)
  Receive Date: 20160430
  Receipt Date: 20160519
  Transmission Date: 20160815
  Serious: Yes (Life-Threatening, Hospitalization)
  Sender: FDA-Public Use
  Company Number: CH-ACCORD-040149

PATIENT
  Age: 57 Year
  Sex: Male

DRUGS (12)
  1. ALLOPURINOL. [Concomitant]
     Active Substance: ALLOPURINOL
  2. LOSARTAN. [Concomitant]
     Active Substance: LOSARTAN
  3. TORASEMIDE [Concomitant]
     Active Substance: TORSEMIDE
  4. IBUPROFEN. [Concomitant]
     Active Substance: IBUPROFEN
  5. TOPIRAMATE. [Suspect]
     Active Substance: TOPIRAMATE
     Indication: ESSENTIAL TREMOR
     Dosage: INITIAL DOSAGE OF 25 MG PER DAY AND INCREASED UP TO 50 MG TWICE A DAY ON THE DAY OF ADMISSION
  6. CITALOPRAM [Concomitant]
     Active Substance: CITALOPRAM HYDROBROMIDE
  7. MEFENAMIC ACID. [Concomitant]
     Active Substance: MEFENAMIC ACID
  8. PROPRANOLOL [Concomitant]
     Active Substance: PROPRANOLOL\PROPRANOLOL HYDROCHLORIDE
  9. METFORMIN [Concomitant]
     Active Substance: METFORMIN HYDROCHLORIDE
  10. ESOMEPRAZOLE/ESOMEPRAZOLE MAGNESIUM/ESOMEPRAZOLE SODIUM [Concomitant]
  11. CLONAZEPAM. [Concomitant]
     Active Substance: CLONAZEPAM
  12. HYDROCHLOROTHIAZIDE. [Concomitant]
     Active Substance: HYDROCHLOROTHIAZIDE

REACTIONS (5)
  - Multiple organ dysfunction syndrome [Recovered/Resolved]
  - Anhidrosis [Unknown]
  - Heat stroke [Recovered/Resolved]
  - Ventricular extrasystoles [Recovered/Resolved]
  - Shock [Recovered/Resolved]
